FAERS Safety Report 15508157 (Version 1)
Quarter: 2018Q4

REPORT INFORMATION
  Report Type: Spontaneous
  Country: IN (occurrence: US)
  Receive Date: 20181016
  Receipt Date: 20181016
  Transmission Date: 20190205
  Serious: Yes (Death, Life-Threatening, Hospitalization, Other)
  Sender: FDA-Public Use
  Company Number: IN-AMNEAL PHARMACEUTICALS-2018AMN00668

PATIENT
  Age: 55 Year
  Sex: Male

DRUGS (3)
  1. PYRIDOSTIGMINE [Concomitant]
     Active Substance: PYRIDOSTIGMINE
     Dosage: UNK
     Route: 065
  2. PREDNISOLONE. [Concomitant]
     Active Substance: PREDNISOLONE
     Dosage: UNK
     Route: 065
  3. AZATHIOPRINE. [Suspect]
     Active Substance: AZATHIOPRINE
     Indication: PRODUCT USED FOR UNKNOWN INDICATION
     Dosage: 100 MG, PER DAY
     Route: 065

REACTIONS (7)
  - Death [Fatal]
  - Diarrhoea [Unknown]
  - Cardiac arrest [Fatal]
  - Asthenia [Unknown]
  - Pancytopenia [Fatal]
  - Septic shock [Fatal]
  - Dizziness [Unknown]
